FAERS Safety Report 17151108 (Version 1)
Quarter: 2019Q4

REPORT INFORMATION
  Report Type: Spontaneous
  Country: US (occurrence: US)
  Receive Date: 20191120
  Receipt Date: 20191120
  Transmission Date: 20200122
  Serious: No
  Sender: FDA-Public Use
  Company Number: None

PATIENT
  Sex: Male

DRUGS (1)
  1. TENOFOVIR++ DISOPROXIL FUMARAT 300MG STRIDES PHARMA [Suspect]
     Active Substance: TENOFOVIR DISOPROXIL FUMARATE
     Indication: HEPATITIS VIRAL
     Route: 048
     Dates: start: 20190812

REACTIONS (2)
  - Abdominal distension [None]
  - Rash [None]
